FAERS Safety Report 10298455 (Version 2)
Quarter: 2014Q3

REPORT INFORMATION
  Report Type: Report from Study
  Country: DE (occurrence: JP)
  Receive Date: 20140711
  Receipt Date: 20140723
  Transmission Date: 20150326
  Serious: Yes (Death)
  Sender: FDA-Public Use
  Company Number: JP-FRI-1000068791

PATIENT
  Sex: Male

DRUGS (5)
  1. MEMANTINE (OPEN-LABEL) [Suspect]
     Active Substance: MEMANTINE
     Dosage: 20 MG
     Route: 048
     Dates: start: 20121207, end: 20130218
  2. MEMANTINE (OPEN-LABEL) [Suspect]
     Active Substance: MEMANTINE
     Indication: DEMENTIA ALZHEIMER^S TYPE
     Dosage: 5 MG
     Route: 048
     Dates: start: 20121116, end: 20121122
  3. MEMANTINE (OPEN-LABEL) [Suspect]
     Active Substance: MEMANTINE
     Dosage: 10 MG
     Route: 048
     Dates: start: 20121123, end: 20121129
  4. RIVASTACH [Concomitant]
     Active Substance: RIVASTIGMINE
     Dosage: 18 MG
     Route: 003
     Dates: start: 20120622
  5. MEMANTINE (OPEN-LABEL) [Suspect]
     Active Substance: MEMANTINE
     Dosage: 15 MG
     Route: 048
     Dates: start: 20121130, end: 20121206

REACTIONS (1)
  - Death [Fatal]

NARRATIVE: CASE EVENT DATE: 20130218
